FAERS Safety Report 7623578-3 (Version None)
Quarter: 2011Q3

REPORT INFORMATION
  Report Type: 
  Country: None (occurrence: None)
  Receive Date: 20110720
  Receipt Date: 20110705
  Transmission Date: 20111222
  Serious: Yes (Hospitalization, Other)
  Sender: FDA-Public Use
  Company Number: IL-SANOFI-AVENTIS-2011SA044073

PATIENT
  Age: 85 Year
  Sex: Male
  Weight: 54 kg

DRUGS (5)
  1. ENALAPRIL MALEATE [Concomitant]
     Route: 065
  2. ASPIRIN [Concomitant]
     Route: 065
  3. FUROSEMIDE [Concomitant]
     Route: 065
  4. DRONEDARONE HCL [Suspect]
     Indication: ATRIAL FIBRILLATION
     Route: 048
     Dates: start: 20110124
  5. SIMVASTATIN [Concomitant]
     Route: 065

REACTIONS (5)
  - CARDIAC FAILURE CONGESTIVE [None]
  - RESPIRATORY TRACT INFECTION [None]
  - DERMATITIS [None]
  - CARDIAC FAILURE [None]
  - PNEUMONIA [None]
